FAERS Safety Report 16141470 (Version 2)
Quarter: 2019Q2

REPORT INFORMATION
  Report Type: Spontaneous
  Country: US (occurrence: US)
  Receive Date: 20190401
  Receipt Date: 20190506
  Transmission Date: 20190711
  Serious: Yes (Other)
  Sender: FDA-Public Use
  Company Number: US-ALLERGAN-1913890US

PATIENT
  Age: 23 Year
  Sex: Female

DRUGS (1)
  1. LILETTA [Suspect]
     Active Substance: LEVONORGESTREL
     Indication: CONTRACEPTION
     Dosage: 52 MG, SINGLE
     Route: 015
     Dates: start: 20181022, end: 20190326

REACTIONS (4)
  - Ectopic pregnancy [Unknown]
  - Abdominal pain [Unknown]
  - Drug ineffective [Unknown]
  - Device expulsion [Unknown]

NARRATIVE: CASE EVENT DATE: 20190326
